FAERS Safety Report 6706631-8 (Version None)
Quarter: 2010Q2

REPORT INFORMATION
  Report Type: 
  Country: None (occurrence: None)
  Receive Date: 20100430
  Receipt Date: 20100430
  Transmission Date: 20101027
  Serious: Yes (Hospitalization, Disabling)
  Sender: FDA-Public Use
  Company Number: None

PATIENT
  Age: 66 Year
  Sex: Female
  Weight: 58.9676 kg

DRUGS (1)
  1. IMITREX [Suspect]
     Indication: MIGRAINE
     Dosage: 1 TABLET FOR HEADACH AS NEEDED PO
     Route: 048
     Dates: start: 20050101, end: 20100314

REACTIONS (4)
  - DIARRHOEA [None]
  - DIZZINESS [None]
  - INTESTINAL ISCHAEMIA [None]
  - PAIN [None]
